FAERS Safety Report 9419670 (Version 1)
Quarter: 2013Q3

REPORT INFORMATION
  Report Type: Spontaneous
  Country: US (occurrence: None)
  Receive Date: 20130723
  Receipt Date: 20130723
  Transmission Date: 20140515
  Serious: Yes (Other)
  Sender: FDA-Public Use
  Company Number: 2013US001954

PATIENT
  Age: 62 Year
  Sex: Male
  Weight: 129 kg

DRUGS (7)
  1. ICLUSIG (PONATINIB) [Suspect]
     Indication: CHRONIC MYELOID LEUKAEMIA
     Route: 048
  2. DIOVAN (VALSARTAN) [Concomitant]
  3. LASIX (FUROSEMIDE SODIUM) [Concomitant]
  4. ATORVASTATIN (ATORVASTATIN) [Concomitant]
  5. ALLOPURINOL [Concomitant]
  6. POTASSIUM CHLORIDE (POTASSIUM CHLORIDE) [Concomitant]
  7. COREG (CARVEDILOL) [Concomitant]

REACTIONS (3)
  - Cardiac pacemaker insertion [None]
  - Platelet count decreased [None]
  - Oedema peripheral [None]
